FAERS Safety Report 16351415 (Version 2)
Quarter: 2019Q2

REPORT INFORMATION
  Report Type: Report from Study
  Country: JP (occurrence: JP)
  Receive Date: 20190524
  Receipt Date: 20190530
  Transmission Date: 20190711
  Serious: Yes (Hospitalization, Other)
  Sender: FDA-Public Use
  Company Number: JP-GLAXOSMITHKLINE-JP2019JPN091076

PATIENT
  Sex: Female
  Weight: 73 kg

DRUGS (23)
  1. RINDERON [BETAMETHASONE] [Suspect]
     Active Substance: BETAMETHASONE
     Indication: SYSTEMIC LUPUS ERYTHEMATOSUS
     Dosage: 2 MG, 1D
     Route: 048
     Dates: start: 20141104
  2. RABEPRAZOLE NA TABLET [Concomitant]
     Dosage: UNK
  3. ALFACALCIDOL CAPSULE [Concomitant]
     Dosage: UNK
  4. BENET TABLETS [Concomitant]
     Active Substance: RISEDRONATE SODIUM
     Dosage: UNK
  5. CRESTOR OD TABLETS [Concomitant]
     Dosage: UNK
  6. EQUA TABLETS [Concomitant]
     Dosage: UNK
  7. FUROSEMIDE TABLETS [Concomitant]
     Active Substance: FUROSEMIDE
     Dosage: UNK
  8. BELIMUMAB [Suspect]
     Active Substance: BELIMUMAB
     Dosage: 10 MG/KG, EVERY 4 WEEKS
     Route: 041
     Dates: start: 20181009, end: 20190104
  9. BENLYSTA [Suspect]
     Active Substance: BELIMUMAB
     Indication: SYSTEMIC LUPUS ERYTHEMATOSUS
     Dosage: UNK
     Route: 058
     Dates: start: 2019
  10. PROGRAF [Suspect]
     Active Substance: TACROLIMUS\TACROLIMUS ANHYDROUS
     Indication: SYSTEMIC LUPUS ERYTHEMATOSUS
     Dosage: UNK
     Route: 048
  11. NIFEDIPINE CR TABLETS [Concomitant]
     Dosage: UNK
  12. TRAMCET COMBINATION TABLETS [Concomitant]
     Indication: ARTHRALGIA
     Dosage: UNK
  13. GLUFAST TABLET [Concomitant]
     Dosage: UNK
  14. AZOSEMIDE TABLET [Concomitant]
     Dosage: UNK
  15. INSULIN GLARGINE BS INJECTION [Concomitant]
     Dosage: UNK
  16. BAKTAR COMBINATION TABLETS [Concomitant]
     Active Substance: SULFAMETHOXAZOLE\TRIMETHOPRIM
     Indication: ANTIFUNGAL PROPHYLAXIS
     Dosage: UNK
  17. TORASEMIDE [Concomitant]
     Active Substance: TORSEMIDE
     Dosage: UNK
  18. MIGLITOL OD [Concomitant]
     Dosage: UNK
  19. TRYPTANOL [Concomitant]
     Active Substance: AMITRIPTYLINE
     Dosage: UNK
  20. ISOSORBIDE DINITRATE. [Concomitant]
     Active Substance: ISOSORBIDE DINITRATE
     Dosage: UNK
  21. BELIMUMAB [Suspect]
     Active Substance: BELIMUMAB
     Indication: SYSTEMIC LUPUS ERYTHEMATOSUS
     Dosage: 10 MG/KG, EVERY 2 WEEKS
     Route: 041
     Dates: start: 20180814, end: 20180911
  22. ASPIRIN ENTERIC-COATED TABLET [Concomitant]
     Dosage: UNK
  23. GIBONZ [Concomitant]
     Dosage: UNK

REACTIONS (2)
  - Cellulitis [Recovered/Resolved]
  - Hospitalisation [Unknown]

NARRATIVE: CASE EVENT DATE: 20190123
